FAERS Safety Report 10182243 (Version 1)
Quarter: 2014Q2

REPORT INFORMATION
  Report Type: Report from Study
  Country: DE (occurrence: DE)
  Receive Date: 20140520
  Receipt Date: 20140520
  Transmission Date: 20141212
  Serious: Yes (Hospitalization)
  Sender: FDA-Public Use
  Company Number: DE-ROCHE-1400646

PATIENT
  Age: 81 Year
  Sex: Female

DRUGS (16)
  1. OBINUTUZUMAB [Suspect]
     Indication: CHRONIC LYMPHOCYTIC LEUKAEMIA
     Dosage: CLL 11 STUDY
     Route: 042
     Dates: start: 20120223, end: 20120726
  2. OBINUTUZUMAB [Suspect]
     Dosage: 1000 MG ON DAYS 1/2, 8 AND 15.
     Route: 042
     Dates: start: 20131219, end: 20131220
  3. OBINUTUZUMAB [Suspect]
     Dosage: FROM CYCLE 2
     Route: 041
  4. CHLORAMBUCIL [Suspect]
     Indication: CHRONIC LYMPHOCYTIC LEUKAEMIA
     Dosage: 4 CYCLES
     Route: 042
     Dates: start: 20120223
  5. APROVEL [Concomitant]
     Indication: HYPERTENSION
     Dosage: STOPPED 12 HOURS BEFORE STUDY MEDICATION
     Route: 048
  6. COAPROVEL [Concomitant]
     Indication: HYPERTENSION
     Dosage: STOPPED 12 HOURS BEFORE STUDY MEDICATION
     Route: 048
  7. FENTANYL [Concomitant]
     Indication: BACK PAIN
     Route: 065
  8. FENTANYL [Concomitant]
     Indication: INTERCOSTAL NEURALGIA
  9. BENDAMUSTINE [Concomitant]
     Dosage: ON DAY 1 AND 2
     Route: 042
     Dates: start: 20131219
  10. RANITIDIN [Concomitant]
     Indication: PREMEDICATION
     Dosage: ON DAYS 1, 2, 8, 15
     Route: 040
     Dates: start: 20131219
  11. PARACETAMOL [Concomitant]
     Indication: PREMEDICATION
     Dosage: ON DAYS 1, 2, 8, 15
     Route: 048
     Dates: start: 20131219
  12. FENISTIL (GERMANY) [Concomitant]
     Indication: PREMEDICATION
     Dosage: ON DAYS 1, 2, 8, 15
     Route: 040
     Dates: start: 20131219
  13. FENISTIL (GERMANY) [Concomitant]
     Indication: PROPHYLAXIS
  14. PREDNISOLON [Concomitant]
     Indication: PREMEDICATION
     Dosage: ON DAYS 1, 2, 8, 15
     Route: 041
     Dates: start: 20131219
  15. COTRIM [Concomitant]
     Indication: PROPHYLAXIS
     Dosage: TWICE PER WEEK (DAYS 1 AND 4)
     Route: 048
     Dates: start: 20131219
  16. FASTURTEC [Concomitant]
     Dosage: ON DAYS 1 TO 4 CYLE 1 ONLY.
     Route: 042
     Dates: start: 20131219

REACTIONS (8)
  - Chest pain [Recovered/Resolved]
  - Hypertension [Recovered/Resolved]
  - Dyspnoea exertional [Recovered/Resolved]
  - Diarrhoea [Recovered/Resolved]
  - Nausea [Recovered/Resolved]
  - Insomnia [Recovered/Resolved]
  - Neutropenia [Recovered/Resolved]
  - Infusion related reaction [Recovered/Resolved]
